FAERS Safety Report 8200855-9 (Version None)
Quarter: 2012Q1

REPORT INFORMATION
  Report Type: 
  Country: None (occurrence: None)
  Receive Date: 20120312
  Receipt Date: 20110426
  Transmission Date: 20120608
  Serious: No
  Sender: FDA-Public Use
  Company Number: US-ABBOTT-11P-163-0722413-00

PATIENT
  Sex: Female
  Weight: 75.818 kg

DRUGS (11)
  1. LUPRON DEPOT [Suspect]
     Indication: UTERINE LEIOMYOMA
     Dates: start: 20100726
  2. LUPRON DEPOT [Suspect]
     Dates: start: 20110401
  3. NASONEX [Concomitant]
     Indication: ASTHMA
  4. FISH OIL [Concomitant]
     Indication: PRODUCT USED FOR UNKNOWN INDICATION
  5. LEVOTHYROXINE SODIUM [Concomitant]
     Indication: HYPOTHYROIDISM
  6. VENTOLIN [Concomitant]
     Indication: ASTHMA
  7. LUPRON DEPOT [Suspect]
     Indication: UTERINE LEIOMYOMA
     Dates: start: 20100101, end: 20110101
  8. LISINOPRIL [Concomitant]
     Indication: BLOOD PRESSURE INCREASED
     Dates: start: 20100101
  9. ASMANEX TWISTHALER [Concomitant]
     Indication: ASTHMA
  10. MULTI-VITAMIN [Concomitant]
     Indication: VITAMIN SUPPLEMENTATION
  11. CLARITIN [Concomitant]
     Indication: SEASONAL ALLERGY

REACTIONS (2)
  - BLOOD CHOLESTEROL INCREASED [None]
  - BLOOD PRESSURE INCREASED [None]
